FAERS Safety Report 5210543-9 (Version None)
Quarter: 2007Q1

REPORT INFORMATION
  Report Type: 
  Country: None (occurrence: None)
  Receive Date: 20070117
  Receipt Date: 20070106
  Transmission Date: 20070707
  Serious: Yes (Disabling)
  Sender: FDA-Public Use
  Company Number: BR-AVENTIS-200710136EU

PATIENT
  Age: 22 Year
  Sex: Female
  Weight: 97 kg

DRUGS (6)
  1. LASIX [Suspect]
     Indication: HYPERTENSION
     Dosage: DOSE: 1 TABLET
     Route: 048
     Dates: start: 20070105
  2. TANDRILAX [Concomitant]
     Route: 048
     Dates: end: 20061231
  3. PLASIL                             /00041901/ [Concomitant]
     Route: 048
  4. OMEPRAZOLE [Concomitant]
     Route: 048
  5. LEVONORGESTREL AND ETHINYL ESTRADIOL [Concomitant]
     Indication: CONTRACEPTION
     Dosage: DOSE: 1 TABLET
     Route: 048
     Dates: end: 20070105
  6. AMLODIPINE [Concomitant]
     Indication: HYPERTENSION
     Route: 048
     Dates: end: 20070104

REACTIONS (5)
  - DIARRHOEA [None]
  - DIZZINESS [None]
  - HEADACHE [None]
  - MUSCULAR WEAKNESS [None]
  - VOMITING [None]
